FAERS Safety Report 9363962 (Version 2)
Quarter: 2013Q2

REPORT INFORMATION
  Report Type: Spontaneous
  Country: JP (occurrence: None)
  Receive Date: 20130618
  Receipt Date: 20130624
  Transmission Date: 20140414
  Serious: Yes (Death)
  Sender: FDA-Public Use
  Company Number: TCI2013A03422

PATIENT
  Age: 83 Year
  Sex: Female

DRUGS (4)
  1. NESINA [Suspect]
     Indication: TYPE 2 DIABETES MELLITUS
     Dosage: 25 MG, 1 IN 1 D
     Route: 048
     Dates: start: 20111128, end: 20130415
  2. LOCHOL [Concomitant]
  3. BONALON [Concomitant]
  4. PRORENAL [Concomitant]

REACTIONS (1)
  - Death [None]
